FAERS Safety Report 14936701 (Version 1)
Quarter: 2018Q2

REPORT INFORMATION
  Report Type: Report from Study
  Country: US (occurrence: US)
  Receive Date: 20180525
  Receipt Date: 20180525
  Transmission Date: 20180711
  Serious: Yes (Other)
  Sender: FDA-Public Use
  Company Number: US-ALEXION PHARMACEUTICALS INC.-A201806330

PATIENT
  Sex: Female

DRUGS (2)
  1. SOLIRIS [Suspect]
     Active Substance: ECULIZUMAB
     Dosage: UNK
     Route: 065
  2. SOLIRIS [Suspect]
     Active Substance: ECULIZUMAB
     Indication: PRODUCT USED FOR UNKNOWN INDICATION
     Dosage: UNK
     Route: 065

REACTIONS (30)
  - Blood glucose abnormal [Unknown]
  - Mean cell haemoglobin concentration abnormal [Unknown]
  - Alanine aminotransferase abnormal [Unknown]
  - Monocyte count abnormal [Unknown]
  - Red blood cell morphology abnormal [Unknown]
  - Laboratory test abnormal [Unknown]
  - Candida infection [Unknown]
  - Pain in extremity [Unknown]
  - White blood cell disorder [Unknown]
  - Red cell distribution width abnormal [Unknown]
  - Platelet count abnormal [Unknown]
  - Granulocytes abnormal [Unknown]
  - Hypertension [Unknown]
  - Red blood cell count abnormal [Unknown]
  - Haematocrit abnormal [Unknown]
  - Fatigue [Unknown]
  - Hypokalaemia [Unknown]
  - Iron overload [Unknown]
  - Haptoglobin abnormal [Unknown]
  - Candida pneumonia [Unknown]
  - Haemoglobin abnormal [Unknown]
  - Mean cell haemoglobin increased [Unknown]
  - Neutrophil percentage abnormal [Unknown]
  - Neutrophil count abnormal [Unknown]
  - Oedema peripheral [Unknown]
  - Mucosal inflammation [Unknown]
  - Blood bilirubin abnormal [Unknown]
  - Aspartate aminotransferase decreased [Unknown]
  - Lymphocyte percentage abnormal [Unknown]
  - Nausea [Unknown]
